FAERS Safety Report 17743252 (Version 3)
Quarter: 2020Q2

REPORT INFORMATION
  Report Type: Spontaneous
  Country: RO (occurrence: RO)
  Receive Date: 20200504
  Receipt Date: 20200529
  Transmission Date: 20200714
  Serious: Yes (Other)
  Sender: FDA-Public Use
  Company Number: NVSC2020RO117739

PATIENT
  Age: 33 Year
  Sex: Male

DRUGS (6)
  1. METHOTREXATE. [Suspect]
     Active Substance: METHOTREXATE
     Indication: ANKYLOSING SPONDYLITIS
     Dosage: UNK
     Route: 065
     Dates: end: 200605
  2. ENBREL [Suspect]
     Active Substance: ETANERCEPT
     Indication: ANKYLOSING SPONDYLITIS
     Dosage: 50 MG QW, 1 AMPULE PER WEEK
     Route: 065
     Dates: start: 2011, end: 2013
  3. MELOXICAM. [Suspect]
     Active Substance: MELOXICAM
     Indication: ANKYLOSING SPONDYLITIS
     Dosage: UNK
     Route: 065
     Dates: end: 200605
  4. SULFASALAZINE. [Suspect]
     Active Substance: SULFASALAZINE
     Indication: ANKYLOSING SPONDYLITIS
     Dosage: UNK
     Route: 065
     Dates: end: 200605
  5. DICLOFENAC [Suspect]
     Active Substance: DICLOFENAC
     Indication: ANKYLOSING SPONDYLITIS
     Dosage: UNK
     Route: 065
     Dates: start: 2011
  6. MELOXICAM. [Suspect]
     Active Substance: MELOXICAM
     Dosage: UNK
     Route: 065
     Dates: end: 201105

REACTIONS (7)
  - Drug ineffective [Unknown]
  - Chills [Unknown]
  - Vomiting [Unknown]
  - Dyspnoea [Unknown]
  - Arrhythmia [Unknown]
  - Diarrhoea haemorrhagic [Unknown]
  - Headache [Unknown]

NARRATIVE: CASE EVENT DATE: 2011
